FAERS Safety Report 9465886 (Version 2)
Quarter: 2016Q1

REPORT INFORMATION
  Report Type: Report from Study
  Country: US (occurrence: US)
  Receive Date: 20130820
  Receipt Date: 20160302
  Transmission Date: 20160526
  Serious: Yes (Hospitalization, Other)
  Sender: FDA-Public Use
  Company Number: US-ASTELLAS-2013US008657

PATIENT
  Age: 54 Year
  Sex: Female

DRUGS (14)
  1. LEVETIRACETAM. [Concomitant]
     Active Substance: LEVETIRACETAM
     Indication: PRODUCT USED FOR UNKNOWN INDICATION
     Route: 048
  2. PLAVIX [Concomitant]
     Active Substance: CLOPIDOGREL BISULFATE
     Indication: PRODUCT USED FOR UNKNOWN INDICATION
     Route: 048
  3. TOBRAMYCIN AND DEXAMETHASONE [Concomitant]
     Active Substance: DEXAMETHASONE\TOBRAMYCIN
     Indication: PRODUCT USED FOR UNKNOWN INDICATION
     Dosage: UNK, UNKNOWN FREQ.
     Route: 065
  4. ERLOTINIB [Suspect]
     Active Substance: ERLOTINIB
     Indication: NON-SMALL CELL LUNG CANCER
     Route: 048
     Dates: start: 20070326
  5. AMLODIPINE [Concomitant]
     Active Substance: AMLODIPINE BESYLATE
     Indication: PRODUCT USED FOR UNKNOWN INDICATION
     Route: 048
  6. MINOCYCLINE [Concomitant]
     Active Substance: MINOCYCLINE\MINOCYCLINE HYDROCHLORIDE
     Indication: ACNE
     Route: 048
  7. HYDROCODONE BITARTRATE AND ACETAMINOPHEN [Concomitant]
     Active Substance: ACETAMINOPHEN\HYDROCODONE BITARTRATE
     Indication: PRODUCT USED FOR UNKNOWN INDICATION
     Dosage: 10/500 MG
     Route: 048
  8. PERMETHRIN. [Concomitant]
     Active Substance: PERMETHRIN
     Indication: PRODUCT USED FOR UNKNOWN INDICATION
     Dosage: APPLY 1 INCH DAILY HEAD TO TOE, AVOID MOUTH, EYES, UNKNOWN FREQ.
     Route: 061
  9. ERLOTINIB [Suspect]
     Active Substance: ERLOTINIB
     Indication: METASTASES TO CENTRAL NERVOUS SYSTEM
  10. LORATADIN [Concomitant]
     Active Substance: LORATADINE
     Indication: PRODUCT USED FOR UNKNOWN INDICATION
     Route: 048
  11. AZITHROMYCIN ANHYDROUS. [Concomitant]
     Active Substance: AZITHROMYCIN ANHYDROUS
     Indication: PRODUCT USED FOR UNKNOWN INDICATION
     Dosage: 2 TABS ON DAY 1,THEN 1 TAB QD FOR 4 DAYS
     Route: 048
  12. ALBUTEROL SULFATE. [Concomitant]
     Active Substance: ALBUTEROL SULFATE
     Indication: PRODUCT USED FOR UNKNOWN INDICATION
     Dosage: 1 DF, 2.5MG/3ML
     Route: 055
  13. LABETALOL HCL [Concomitant]
     Active Substance: LABETALOL HYDROCHLORIDE
     Indication: PRODUCT USED FOR UNKNOWN INDICATION
     Route: 048
  14. PROAIR HFA [Concomitant]
     Active Substance: ALBUTEROL SULFATE
     Indication: PRODUCT USED FOR UNKNOWN INDICATION
     Dosage: 2 PUFFS EVERY 4 HRS PRN
     Route: 055

REACTIONS (29)
  - Adrenal disorder [Unknown]
  - Body tinea [Unknown]
  - Gastritis [Unknown]
  - Cataract [Unknown]
  - Retroperitoneal lymphadenopathy [Unknown]
  - Pneumothorax [Unknown]
  - Arteriosclerosis coronary artery [Unknown]
  - Ischaemic stroke [Unknown]
  - Gastric disorder [Unknown]
  - Back pain [Unknown]
  - Hypertension [Unknown]
  - Hepatic steatosis [Unknown]
  - Upper respiratory tract infection [Unknown]
  - Renal cyst [Unknown]
  - Seizure [Unknown]
  - Diabetes mellitus [Unknown]
  - Odynophagia [Unknown]
  - Rhinitis allergic [Unknown]
  - Pain in extremity [Unknown]
  - Rash [Unknown]
  - Angina pectoris [Unknown]
  - Insomnia [Unknown]
  - Pain [Unknown]
  - Acarodermatitis [Unknown]
  - Diverticulum [Unknown]
  - Dysphagia [Unknown]
  - Rosacea [Unknown]
  - Acne [Unknown]
  - Conjunctivitis [Unknown]

NARRATIVE: CASE EVENT DATE: 200708
